FAERS Safety Report 8771020 (Version 1)
Quarter: 2012Q4

REPORT INFORMATION
  Report Type: 
  Country: US (occurrence: US)
  Receive Date: 20120906
  Receipt Date: 20120906
  Transmission Date: 20130627
  Serious: No
  Sender: FDA-Public Use
  Company Number: US-B.I. PHARMACEUTICALS,INC./RIDGEFIELD-2012-BP-21249BP

PATIENT
  Sex: Female

DRUGS (1)
  1. ZANTAC 75 (RANITIDINE HYDROCHLORIDE) [Suspect]
     Indication: DYSPEPSIA
     Dosage: 150 mg
     Route: 048
     Dates: start: 20120829

REACTIONS (1)
  - Drug ineffective [Not Recovered/Not Resolved]
